FAERS Safety Report 11398998 (Version 1)
Quarter: 2015Q3

REPORT INFORMATION
  Report Type: Spontaneous
  Country: US (occurrence: None)
  Receive Date: 20150806
  Receipt Date: 20150806
  Transmission Date: 20151125
  Serious: Yes (Hospitalization)
  Sender: FDA-Public Use
  Company Number: POI0581201500009

PATIENT
  Age: 67 Year
  Sex: Female
  Weight: 192 kg

DRUGS (14)
  1. TIKOSYN [Suspect]
     Active Substance: DOFETILIDE
  2. TOPROL XL [Concomitant]
     Active Substance: METOPROLOL SUCCINATE
  3. LEVAQUIN [Concomitant]
     Active Substance: LEVOFLOXACIN
  4. COUMADIN [Concomitant]
     Active Substance: WARFARIN SODIUM
  5. SINGULAIR (MONTELUKAST SODIUM) [Concomitant]
  6. ASPIRIN 81 (ACETYLSALICYLIC ACID) [Concomitant]
  7. NORCO (VICODIN) [Concomitant]
  8. AZASAN [Suspect]
     Active Substance: AZATHIOPRINE
     Indication: CROHN^S DISEASE
     Route: 048
     Dates: start: 20150320, end: 20150409
  9. ADVIR (SERETIDE) [Concomitant]
  10. DEXILANT [Concomitant]
     Active Substance: DEXLANSOPRAZOLE
  11. DIOVAN [Concomitant]
     Active Substance: VALSARTAN
  12. FOLIC ACID. [Concomitant]
     Active Substance: FOLIC ACID
  13. OXYGEN. [Concomitant]
     Active Substance: OXYGEN
  14. GABAPENTIN. [Concomitant]
     Active Substance: GABAPENTIN

REACTIONS (2)
  - Pyrexia [None]
  - Pancreatitis acute [None]

NARRATIVE: CASE EVENT DATE: 20150404
